FAERS Safety Report 19014024 (Version 3)
Quarter: 2021Q1

REPORT INFORMATION
  Report Type: Spontaneous
  Country: DK (occurrence: DK)
  Receive Date: 20210316
  Receipt Date: 20210331
  Transmission Date: 20210420
  Serious: Yes (Hospitalization)
  Sender: FDA-Public Use
  Company Number: DK-ELI_LILLY_AND_COMPANY-DK202103005064

PATIENT
  Age: 75 Year
  Sex: Female
  Weight: 59 kg

DRUGS (41)
  1. FUROSEMIDE. [Concomitant]
     Active Substance: FUROSEMIDE
     Indication: PRODUCT USED FOR UNKNOWN INDICATION
     Dosage: UNK UNK, UNKNOWN
     Route: 065
     Dates: start: 20201216
  2. DAPTOMYCIN. [Concomitant]
     Active Substance: DAPTOMYCIN
     Indication: PRODUCT USED FOR UNKNOWN INDICATION
     Dosage: SINGLE
     Route: 065
     Dates: start: 20210111, end: 20210120
  3. GABAPENTIN. [Concomitant]
     Active Substance: GABAPENTIN
     Indication: PRODUCT USED FOR UNKNOWN INDICATION
     Dosage: UNK UNK, UNKNOWN
     Route: 065
     Dates: start: 20190309
  4. LINEZOLID. [Concomitant]
     Active Substance: LINEZOLID
     Indication: PRODUCT USED FOR UNKNOWN INDICATION
     Dosage: UNK UNK, UNKNOWN
     Route: 065
     Dates: start: 20210111, end: 20210120
  5. SODIUM PICOSULFATE [Concomitant]
     Active Substance: SODIUM PICOSULFATE
     Indication: PRODUCT USED FOR UNKNOWN INDICATION
     Dosage: UNK UNK, UNKNOWN
     Route: 065
     Dates: start: 20200210
  6. GEMCITABINE HYDROCHLORIDE. [Suspect]
     Active Substance: GEMCITABINE HYDROCHLORIDE
     Dosage: 1620 MG, SINGLE
     Route: 042
     Dates: start: 20210203
  7. PIPERACILLIN AND TAZOBACTAM [Concomitant]
     Active Substance: PIPERACILLIN SODIUM\TAZOBACTAM SODIUM
     Indication: PRODUCT USED FOR UNKNOWN INDICATION
     Dosage: UNK, UNKNOWN
     Route: 065
     Dates: start: 20210111, end: 20210120
  8. DEXAMETHASONE. [Concomitant]
     Active Substance: DEXAMETHASONE
     Indication: PRODUCT USED FOR UNKNOWN INDICATION
     Dosage: SINGLE
     Route: 065
     Dates: start: 20210113, end: 20210117
  9. MAGNESIUM [Concomitant]
     Active Substance: MAGNESIUM
     Indication: PRODUCT USED FOR UNKNOWN INDICATION
     Dosage: UNK UNK, UNKNOWN
     Route: 065
     Dates: start: 20210103
  10. GEMCITABINE HYDROCHLORIDE. [Suspect]
     Active Substance: GEMCITABINE HYDROCHLORIDE
     Indication: DIFFUSE LARGE B-CELL LYMPHOMA STAGE IV
     Dosage: 1690 MG, SINGLE
     Route: 042
     Dates: start: 20201130, end: 20201130
  11. GEMCITABINE HYDROCHLORIDE. [Suspect]
     Active Substance: GEMCITABINE HYDROCHLORIDE
     Dosage: 1620 UNK
     Route: 042
     Dates: start: 20210106, end: 20210106
  12. OXYCODONE HYDROCHLORIDE. [Concomitant]
     Active Substance: OXYCODONE HYDROCHLORIDE
     Indication: PRODUCT USED FOR UNKNOWN INDICATION
     Dosage: UNK UNK, UNKNOWN
     Route: 065
     Dates: start: 20201122
  13. MIRTAZAPINE. [Concomitant]
     Active Substance: MIRTAZAPINE
     Indication: PRODUCT USED FOR UNKNOWN INDICATION
     Dosage: UNK UNK, UNKNOWN
     Route: 065
     Dates: start: 20180621
  14. VALACICLOVIR [Concomitant]
     Active Substance: VALACYCLOVIR HYDROCHLORIDE
     Indication: PRODUCT USED FOR UNKNOWN INDICATION
     Dosage: UNK, UNKNOWN
     Route: 065
     Dates: start: 20210205
  15. CASPOFUNGIN [Concomitant]
     Active Substance: CASPOFUNGIN
     Indication: PRODUCT USED FOR UNKNOWN INDICATION
     Dosage: UNK, UNKNOWN
     Route: 065
     Dates: start: 20210222
  16. OXALIPLATIN. [Suspect]
     Active Substance: OXALIPLATIN
     Indication: DIFFUSE LARGE B-CELL LYMPHOMA STAGE IV
     Dosage: 169 MG, SINGLE
     Route: 042
     Dates: start: 20201130, end: 20201130
  17. OXALIPLATIN. [Suspect]
     Active Substance: OXALIPLATIN
     Dosage: 162 MG, SINGLE
     Route: 042
     Dates: start: 20210106, end: 20210106
  18. FOSCARNET [Concomitant]
     Active Substance: FOSCARNET
     Indication: PRODUCT USED FOR UNKNOWN INDICATION
     Dosage: UNK, UNKNOWN
     Route: 065
     Dates: start: 20210118, end: 20210121
  19. VANCOMYCIN [Concomitant]
     Active Substance: VANCOMYCIN
     Indication: PRODUCT USED FOR UNKNOWN INDICATION
     Dosage: UNK UNK, UNKNOWN
     Route: 065
     Dates: start: 20210106, end: 20210116
  20. FLUCONAZOLE. [Concomitant]
     Active Substance: FLUCONAZOLE
     Indication: PRODUCT USED FOR UNKNOWN INDICATION
     Dosage: UNK UNK, UNKNOWN
     Route: 065
     Dates: start: 20201205
  21. COTRIMOXAZOLE [Concomitant]
     Active Substance: SULFAMETHOXAZOLE\TRIMETHOPRIM
     Indication: PRODUCT USED FOR UNKNOWN INDICATION
     Dosage: UNK, UNKNOWN
     Route: 065
     Dates: start: 20210106
  22. OXALIPLATIN. [Suspect]
     Active Substance: OXALIPLATIN
     Dosage: 162 MG, SINGLE
     Route: 042
     Dates: start: 20210203
  23. VALGANCICLOVIR. [Concomitant]
     Active Substance: VALGANCICLOVIR
     Indication: PRODUCT USED FOR UNKNOWN INDICATION
     Dosage: UNK UNK, UNKNOWN
     Route: 065
     Dates: start: 20210122
  24. GANCICLOVIR. [Concomitant]
     Active Substance: GANCICLOVIR
     Indication: PRODUCT USED FOR UNKNOWN INDICATION
     Dosage: UNK UNK, UNKNOWN
     Route: 065
     Dates: start: 20210114, end: 20210118
  25. LAMOTRIGINE. [Concomitant]
     Active Substance: LAMOTRIGINE
     Indication: PRODUCT USED FOR UNKNOWN INDICATION
     Dosage: UNK UNK, UNKNOWN
     Route: 065
     Dates: start: 20150702
  26. MACROGOL [Concomitant]
     Active Substance: POLYETHYLENE GLYCOLS
     Indication: PRODUCT USED FOR UNKNOWN INDICATION
     Dosage: UNK UNK, UNKNOWN
     Route: 065
     Dates: start: 20190216
  27. GENTAMICIN. [Concomitant]
     Active Substance: GENTAMICIN
     Indication: PRODUCT USED FOR UNKNOWN INDICATION
     Dosage: UNK UNK, UNKNOWN
     Route: 065
     Dates: start: 20210111, end: 20210121
  28. CETIRIZIN [Concomitant]
     Active Substance: CETIRIZINE HYDROCHLORIDE
     Indication: PRODUCT USED FOR UNKNOWN INDICATION
     Dosage: UNK, UNKNOWN
     Route: 065
     Dates: start: 20201130, end: 20210203
  29. IMMUNGLOBULIN [Concomitant]
     Active Substance: HUMAN IMMUNOGLOBULIN G
     Indication: PRODUCT USED FOR UNKNOWN INDICATION
     Dosage: UNK, UNKNOWN
     Route: 065
     Dates: start: 20210213
  30. PREDNISOLONE [PREDNISOLONE ACETATE] [Concomitant]
     Active Substance: PREDNISOLONE ACETATE
     Indication: PRODUCT USED FOR UNKNOWN INDICATION
     Dosage: UNK, UNKNOWN
     Route: 065
     Dates: start: 20201130, end: 20210209
  31. ACICLOVIR [Concomitant]
     Active Substance: ACYCLOVIR
     Indication: PRODUCT USED FOR UNKNOWN INDICATION
     Dosage: UNK, UNKNOWN
     Route: 065
     Dates: start: 20210211
  32. OXALIPLATIN. [Suspect]
     Active Substance: OXALIPLATIN
     Dosage: 169 MG, SINGLE
     Route: 042
     Dates: start: 20201214, end: 20201214
  33. ALENDRONATE SODIUM. [Concomitant]
     Active Substance: ALENDRONATE SODIUM
     Indication: PRODUCT USED FOR UNKNOWN INDICATION
     Dosage: SINGLE
     Route: 065
     Dates: start: 20150602
  34. GEMCITABINE HYDROCHLORIDE. [Suspect]
     Active Substance: GEMCITABINE HYDROCHLORIDE
     Dosage: 1690 UNK
     Route: 042
     Dates: start: 20201214, end: 20201214
  35. GEMCITABINE HYDROCHLORIDE. [Suspect]
     Active Substance: GEMCITABINE HYDROCHLORIDE
     Dosage: 1690 UNK, SINGLE
     Route: 042
     Dates: start: 20210203
  36. PANTOPRAZOLE [Concomitant]
     Active Substance: PANTOPRAZOLE
     Indication: PRODUCT USED FOR UNKNOWN INDICATION
     Dosage: UNK, UNKNOWN
     Route: 065
     Dates: start: 20180903
  37. KALIUMCHLORID [Concomitant]
     Active Substance: POTASSIUM CHLORIDE
     Indication: PRODUCT USED FOR UNKNOWN INDICATION
     Dosage: UNK UNK, UNKNOWN
     Route: 065
     Dates: start: 20181011
  38. DIAZEPAM. [Concomitant]
     Active Substance: DIAZEPAM
     Indication: PRODUCT USED FOR UNKNOWN INDICATION
     Dosage: UNK UNK, UNKNOWN
     Route: 065
     Dates: start: 20200710
  39. SULFAMETOXAZOL MED TRIMETOPRIM [Concomitant]
     Active Substance: SULFAMETHOXAZOLE\TRIMETHOPRIM
     Indication: PRODUCT USED FOR UNKNOWN INDICATION
     Dosage: UNK UNK, UNKNOWN
     Route: 065
     Dates: start: 20210106
  40. PARACETAMOL [Concomitant]
     Active Substance: ACETAMINOPHEN
     Indication: PRODUCT USED FOR UNKNOWN INDICATION
     Dosage: UNK, UNKNOWN
     Route: 065
     Dates: start: 20201130, end: 20210203
  41. FILGRASTIM [Concomitant]
     Active Substance: FILGRASTIM
     Indication: PRODUCT USED FOR UNKNOWN INDICATION
     Dosage: UNK, UNKNOWN
     Route: 065
     Dates: start: 20210210

REACTIONS (3)
  - Immune effector cell-associated neurotoxicity syndrome [Recovered/Resolved]
  - Pyrexia [Recovered/Resolved]
  - Off label use [Unknown]

NARRATIVE: CASE EVENT DATE: 20210130
